FAERS Safety Report 9494181 (Version 1)
Quarter: 2013Q3

REPORT INFORMATION
  Report Type: Spontaneous
  Country: US (occurrence: US)
  Receive Date: 20130903
  Receipt Date: 20130903
  Transmission Date: 20140515
  Serious: No
  Sender: FDA-Public Use
  Company Number: US-BAYER-2013-105752

PATIENT
  Sex: Female
  Weight: 78.01 kg

DRUGS (7)
  1. BETASERON [Suspect]
     Dosage: 0.3 MG, UNK
  2. NORVASC [Concomitant]
     Dosage: 5 MG, UNK
  3. LIPITOR [Concomitant]
     Dosage: 80 MG, UNK
  4. DIOVAN [Concomitant]
     Dosage: 320 MG, UNK
  5. VITAMIN D [Concomitant]
     Dosage: 2000 U, UNK
  6. ALEVE CAPLET [Concomitant]
     Dosage: 220 MG, UNK
  7. VITAMIN C [Concomitant]
     Dosage: 500 MG, UNK

REACTIONS (2)
  - Fatigue [Unknown]
  - Muscular weakness [Unknown]
